FAERS Safety Report 7038778-3 (Version None)
Quarter: 2010Q4

REPORT INFORMATION
  Report Type: 
  Country: None (occurrence: None)
  Receive Date: 20101012
  Receipt Date: 20101004
  Transmission Date: 20110411
  Serious: Yes (Hospitalization)
  Sender: FDA-Public Use
  Company Number: US-BIOGENIDEC-2010BI031809

PATIENT
  Age: 47 Year
  Sex: Female

DRUGS (2)
  1. TYSABRI [Suspect]
     Indication: MULTIPLE SCLEROSIS
     Route: 042
     Dates: start: 20080701, end: 20091106
  2. TYSABRI [Suspect]
     Route: 042
     Dates: start: 20100217, end: 20100901

REACTIONS (2)
  - DECREASED IMMUNE RESPONSIVENESS [None]
  - STAPHYLOCOCCAL SKIN INFECTION [None]
